FAERS Safety Report 5312367-0 (Version None)
Quarter: 2007Q2

REPORT INFORMATION
  Report Type: 
  Country: None (occurrence: None)
  Receive Date: 20070430
  Receipt Date: 20061115
  Transmission Date: 20071010
  Serious: No
  Sender: FDA-Public Use
  Company Number: 2006UW24323

PATIENT
  Age: 47 Year
  Sex: Female
  Weight: 112 kg

DRUGS (2)
  1. NEXIUM [Suspect]
     Indication: GASTROOESOPHAGEAL REFLUX DISEASE
     Route: 048
  2. MAALOX ANTACID/ANTIGAS [Interacting]
     Indication: STOMACH DISCOMFORT
     Dosage: 2 TSP ONCE/SINGLE
     Route: 048
     Dates: start: 20060922

REACTIONS (6)
  - COUGH [None]
  - DRUG INTERACTION [None]
  - FEELING COLD [None]
  - FEELING HOT [None]
  - FLUSHING [None]
  - INCREASED UPPER AIRWAY SECRETION [None]
